FAERS Safety Report 9879208 (Version 1)
Quarter: 2014Q1

REPORT INFORMATION
  Report Type: Spontaneous
  Country: IT (occurrence: IT)
  Receive Date: 20140206
  Receipt Date: 20140206
  Transmission Date: 20141002
  Serious: Yes (Other)
  Sender: FDA-Public Use
  Company Number: PHHY2014IT011928

PATIENT
  Sex: Male
  Weight: 1.72 kg

DRUGS (2)
  1. DIGOXIN [Suspect]
     Route: 064
  2. DIURETICS [Suspect]
     Route: 064

REACTIONS (3)
  - Low birth weight baby [Unknown]
  - Premature baby [Unknown]
  - Foetal exposure during pregnancy [Unknown]
